FAERS Safety Report 6031993-7 (Version None)
Quarter: 2009Q1

REPORT INFORMATION
  Report Type: 
  Country: None (occurrence: None)
  Receive Date: 20090107
  Receipt Date: 20081223
  Transmission Date: 20090719
  Serious: Yes (Other)
  Sender: FDA-Public Use
  Company Number: SPV1-2008-02746

PATIENT
  Sex: Male

DRUGS (1)
  1. XAGRID(ANAGRELIDE HYDROCHLORIDE) CAPSULE [Suspect]
     Indication: ESSENTIAL THROMBOCYTHAEMIA
     Dates: start: 20081201

REACTIONS (1)
  - NO ADVERSE EVENT [None]
